FAERS Safety Report 8039096-7 (Version None)
Quarter: 2012Q1

REPORT INFORMATION
  Report Type: 
  Country: None (occurrence: None)
  Receive Date: 20120111
  Receipt Date: 20111212
  Transmission Date: 20120608
  Serious: No
  Sender: FDA-Public Use
  Company Number: US-AMGEN-USASP2011066122

PATIENT
  Age: 45 Year
  Sex: Female

DRUGS (2)
  1. ENBREL [Suspect]
     Indication: RHEUMATOID ARTHRITIS
     Dosage: 50 MG, QWK
     Dates: start: 20111201
  2. ENBREL [Suspect]
     Indication: SYSTEMIC LUPUS ERYTHEMATOSUS

REACTIONS (4)
  - EYE SWELLING [None]
  - OCULAR HYPERAEMIA [None]
  - EYE INFLAMMATION [None]
  - SENSATION OF PRESSURE [None]
